FAERS Safety Report 7611233-5 (Version None)
Quarter: 2011Q3

REPORT INFORMATION
  Report Type: 
  Country: None (occurrence: None)
  Receive Date: 20110715
  Receipt Date: 20110704
  Transmission Date: 20111222
  Serious: Yes (Other)
  Sender: FDA-Public Use
  Company Number: CA-JNJFOC-20110701945

PATIENT
  Sex: Male
  Weight: 44 kg

DRUGS (1)
  1. REMICADE [Suspect]
     Indication: CROHN'S DISEASE
     Route: 042

REACTIONS (4)
  - DYSPNOEA [None]
  - FLUSHING [None]
  - COUGH [None]
  - INFUSION RELATED REACTION [None]
